FAERS Safety Report 12827888 (Version 1)
Quarter: 2016Q4

REPORT INFORMATION
  Report Type: Spontaneous
  Country: CA (occurrence: CA)
  Receive Date: 20161007
  Receipt Date: 20161007
  Transmission Date: 20170207
  Serious: Yes (Other)
  Sender: FDA-Public Use
  Company Number: CA-SHIRE-CA201613736

PATIENT
  Sex: Female
  Weight: 54.42 kg

DRUGS (1)
  1. VYVANSE [Suspect]
     Active Substance: LISDEXAMFETAMINE DIMESYLATE
     Indication: PRODUCT USED FOR UNKNOWN INDICATION
     Dosage: 40 MG, 1X/DAY:QD
     Route: 048
     Dates: start: 2014

REACTIONS (5)
  - Arrhythmia [Unknown]
  - Heart rate irregular [Unknown]
  - Hypoglycaemia [Unknown]
  - Vaginal haemorrhage [Unknown]
  - Heart rate increased [Unknown]
